FAERS Safety Report 9246611 (Version 2)
Quarter: 2013Q2

REPORT INFORMATION
  Report Type: Spontaneous
  Country: US (occurrence: US)
  Receive Date: 20130422
  Receipt Date: 20130620
  Transmission Date: 20140414
  Serious: Yes (Other)
  Sender: FDA-Public Use
  Company Number: US-ELI_LILLY_AND_COMPANY-US201304005185

PATIENT
  Age: 52 Year
  Sex: Female

DRUGS (2)
  1. EVISTA [Suspect]
     Indication: OSTEOPOROSIS
     Dosage: UNK, UNKNOWN
     Route: 065
  2. FORTEO [Suspect]
     Indication: OSTEOPOROSIS

REACTIONS (11)
  - Cervical vertebral fracture [Unknown]
  - Spinal fracture [Unknown]
  - Osteoporotic fracture [Unknown]
  - Body height decreased [Unknown]
  - Pain [Unknown]
  - Multiple fractures [Unknown]
  - Hand fracture [Unknown]
  - Wrist fracture [Unknown]
  - Foot fracture [Unknown]
  - Foot fracture [Unknown]
  - Rib fracture [Unknown]
